FAERS Safety Report 18405500 (Version 2)
Quarter: 2020Q4

REPORT INFORMATION
  Report Type: Report from Study
  Country: US (occurrence: US)
  Receive Date: 20201020
  Receipt Date: 20201111
  Transmission Date: 20210114
  Serious: No
  Sender: FDA-Public Use
  Company Number: US-BRISTOL-MYERS SQUIBB COMPANY-BMS-2020-087104

PATIENT
  Age: 56 Year
  Sex: Female
  Weight: 55.79 kg

DRUGS (2)
  1. ABATACEPT [Suspect]
     Active Substance: ABATACEPT
     Indication: OVERLAP SYNDROME
  2. ABATACEPT [Suspect]
     Active Substance: ABATACEPT
     Indication: RHEUMATOID ARTHRITIS
     Dosage: 125 MILLIGRAM, QWK
     Route: 058
     Dates: start: 20200722

REACTIONS (3)
  - Intentional product use issue [Unknown]
  - Nail discolouration [Unknown]
  - Device malfunction [Unknown]

NARRATIVE: CASE EVENT DATE: 20201022
